FAERS Safety Report 9171381 (Version 1)
Quarter: 2013Q1

REPORT INFORMATION
  Report Type: Spontaneous
  Country: US (occurrence: US)
  Receive Date: 20130319
  Receipt Date: 20130319
  Transmission Date: 20140127
  Serious: Yes (Other)
  Sender: FDA-Public Use
  Company Number: US-PFIZER INC-2013090287

PATIENT
  Sex: Female

DRUGS (6)
  1. MS CONTIN [Suspect]
     Indication: PAIN
     Dosage: 60 MG, Q12H
     Route: 048
  2. MORPHINE SULFATE [Suspect]
     Indication: PAIN
     Dosage: 40 MG, Q4- 6H
     Route: 048
  3. NEURONTIN [Suspect]
     Indication: NEURALGIA
     Dosage: UNK
     Route: 048
  4. VALIUM [Suspect]
     Indication: MUSCLE SPASTICITY
     Dosage: UNK
     Route: 048
  5. ULTRAM [Suspect]
     Indication: PAIN
     Dosage: UNK
     Route: 048
  6. TYLENOL [Suspect]
     Indication: PAIN
     Route: 048

REACTIONS (2)
  - Surgery [Unknown]
  - Drug effect decreased [Unknown]
